FAERS Safety Report 11163651 (Version 2)
Quarter: 2015Q3

REPORT INFORMATION
  Report Type: Report from Study
  Country: FR (occurrence: FR)
  Receive Date: 20150604
  Receipt Date: 20150805
  Transmission Date: 20151125
  Serious: Yes (Death, Other)
  Sender: FDA-Public Use
  Company Number: FR-CELGENE-FRA-2015060005

PATIENT

DRUGS (3)
  1. REVLIMID [Suspect]
     Active Substance: LENALIDOMIDE
     Indication: PLASMA CELL MYELOMA
     Route: 048
  2. VELCADE [Concomitant]
     Active Substance: BORTEZOMIB
     Indication: PLASMA CELL MYELOMA
     Route: 065
  3. DEXAMETHASONE. [Concomitant]
     Active Substance: DEXAMETHASONE
     Indication: PLASMA CELL MYELOMA
     Route: 065

REACTIONS (5)
  - Plasma cell myeloma recurrent [Unknown]
  - Death [Fatal]
  - Adverse event [Unknown]
  - Second primary malignancy [Unknown]
  - Plasma cell myeloma [Unknown]
